FAERS Safety Report 6457710 (Version 23)
Quarter: 2014Q1

REPORT INFORMATION
  Report Type: Spontaneous
  Country: US (occurrence: US)
  Receive Date: 20071102
  Receipt Date: 20140331
  Transmission Date: 20141002
  Serious: Yes (Hospitalization, Other)
  Sender: FDA-Public Use
  Company Number: PHEH2007US14099

PATIENT
  Age: 48 Year
  Sex: Male

DRUGS (70)
  1. AREDIA [Suspect]
     Dosage: 90 MG, QMO
     Route: 041
  2. ZOMETA [Suspect]
     Dates: end: 200404
  3. ZOMETA [Suspect]
     Route: 042
  4. Z-PAK [Suspect]
  5. THALIDOMIDE [Suspect]
     Dates: end: 200508
  6. FAMVIR                                  /NET/ [Concomitant]
  7. BACTRIM [Concomitant]
  8. DIFLUCAN [Concomitant]
  9. DEXAMETHASONE [Concomitant]
  10. OXYCONTIN [Concomitant]
  11. ATIVAN [Concomitant]
  12. ALLOPURINOL [Concomitant]
  13. ZANTAC [Concomitant]
  14. COUMADIN ^BOOTS^ [Concomitant]
     Indication: THROMBOSIS PROPHYLAXIS
  15. VINCRISTINE [Concomitant]
  16. DOXORUBICIN [Concomitant]
  17. PREDNISONE [Concomitant]
  18. LIPITOR                                 /NET/ [Concomitant]
  19. TRAZODONE [Concomitant]
  20. CLONAZEPAM [Concomitant]
  21. PENICILLIN NOS [Concomitant]
  22. PREVACID [Concomitant]
  23. BEXTRA [Concomitant]
  24. CEPHALEXIN [Concomitant]
  25. ZOCOR ^DIECKMANN^ [Concomitant]
  26. PROZAC [Concomitant]
  27. CHLORHEXIDINE [Concomitant]
  28. MAGNESIUM OXIDE [Concomitant]
  29. LORTAB [Concomitant]
  30. CYCLOPHOSPHAMIDE [Concomitant]
  31. CYTOXAN [Concomitant]
  32. KYTRIL [Concomitant]
  33. NEURONTIN [Concomitant]
  34. CEFEPIME [Concomitant]
  35. MYCELEX [Concomitant]
  36. NEUPOGEN [Concomitant]
  37. RESTORIL [Concomitant]
  38. KLONOPIN [Concomitant]
  39. CELEBREX [Concomitant]
  40. LEVAQUIN [Concomitant]
  41. DECADRON                                /CAN/ [Concomitant]
  42. MELPHALAN [Concomitant]
  43. PENICILLIN ^GRUNENTHAL^ [Concomitant]
  44. AUGMENTIN [Concomitant]
  45. FOLIC ACID [Concomitant]
  46. FERROUS SULFATE [Concomitant]
  47. CALCIUM WITH VITAMIN D [Concomitant]
  48. ZOFRAN [Concomitant]
     Route: 042
  49. MORPHINE [Concomitant]
     Route: 042
  50. COLACE [Concomitant]
     Dosage: 100 MG, BID
  51. MEPERIDINE [Concomitant]
  52. VITAMIN B12 [Concomitant]
     Dosage: 800 UG, QD
     Route: 048
  53. ASPIRIN ^BAYER^ [Concomitant]
     Route: 048
  54. PENICLINE [Concomitant]
     Dosage: 500 MG, BID
  55. MULTIVITAMIN ^LAPPE^ [Concomitant]
     Dosage: 1 DF, QD
     Route: 048
  56. VITAMIN E [Concomitant]
     Dosage: 400 IU, QD
     Route: 048
  57. PHENERGAN ^AVENTIS PHARMA^ [Concomitant]
     Dosage: 12.5 MG, PRN
     Route: 042
  58. REGLAN                                  /USA/ [Concomitant]
     Dosage: 10 MG, PRN
  59. ATROPIN [Concomitant]
     Dosage: 0.5 MG, PRN
     Route: 042
  60. EPHEDRIN [Concomitant]
     Dosage: 10 MG,
     Route: 042
  61. LABETALOL [Concomitant]
     Dosage: 5 MG,
     Route: 042
  62. COZAAR [Concomitant]
  63. PRILOSEC [Concomitant]
  64. WELLBUTRIN [Concomitant]
  65. CIPRO [Concomitant]
     Dosage: 500 MG, BID
     Route: 048
  66. AXID [Concomitant]
     Dosage: 150 MG, BID
     Route: 048
  67. FORTAZ [Concomitant]
  68. GENTAMICIN [Concomitant]
  69. UNASYN [Concomitant]
  70. HYDROCODONE [Concomitant]

REACTIONS (74)
  - Pneumonia [Unknown]
  - Osteonecrosis of jaw [Recovered/Resolved]
  - Pain [Unknown]
  - Infection [Unknown]
  - Deformity [Unknown]
  - Injury [Recovered/Resolved with Sequelae]
  - Emotional distress [Recovered/Resolved with Sequelae]
  - Anxiety [Unknown]
  - Deep vein thrombosis [Unknown]
  - Nephrolithiasis [Unknown]
  - Primary sequestrum [Unknown]
  - Bone disorder [Unknown]
  - Osteomyelitis [Unknown]
  - Febrile neutropenia [Unknown]
  - Clostridium difficile colitis [Unknown]
  - Bacteraemia [Unknown]
  - Osteonecrosis [Unknown]
  - Osteoarthritis [Unknown]
  - Rib fracture [Unknown]
  - Pyogenic granuloma [Unknown]
  - Abdominal pain [Unknown]
  - Fatigue [Unknown]
  - Anaemia [Unknown]
  - Hyperlipidaemia [Unknown]
  - Abdominal distension [Unknown]
  - Prostatomegaly [Unknown]
  - Weight decreased [Unknown]
  - Dyspnoea [Unknown]
  - Viral upper respiratory tract infection [Unknown]
  - Sciatica [Unknown]
  - Hypercholesterolaemia [Unknown]
  - Neuropathy peripheral [Unknown]
  - Gastrooesophageal reflux disease [Unknown]
  - Joint effusion [Unknown]
  - Faecaloma [Unknown]
  - Phlebitis [Recovering/Resolving]
  - Sepsis [Recovering/Resolving]
  - Mucosal inflammation [Recovering/Resolving]
  - Restless legs syndrome [Unknown]
  - Spinal cord compression [Unknown]
  - Depression [Recovered/Resolved]
  - Diverticulum [Unknown]
  - Fall [Unknown]
  - Contusion [Unknown]
  - Weight increased [Unknown]
  - Plantar fasciitis [Unknown]
  - Muscular weakness [Unknown]
  - Intervertebral disc degeneration [Unknown]
  - Proctalgia [Unknown]
  - Plasmacytoma [Unknown]
  - Bacillus test positive [Unknown]
  - Leukopenia [Unknown]
  - Pain in extremity [Unknown]
  - Dry eye [Unknown]
  - Polyneuropathy [Unknown]
  - Myopia [Unknown]
  - Astigmatism [Unknown]
  - Presbyopia [Unknown]
  - Vitreous floaters [Unknown]
  - Dyslipidaemia [Unknown]
  - Radiculopathy [Unknown]
  - Alopecia [Unknown]
  - Vitamin D deficiency [Unknown]
  - Tooth fracture [Unknown]
  - Vitreous detachment [Unknown]
  - Haemorrhoids [Unknown]
  - Tooth loss [Unknown]
  - Gait disturbance [Unknown]
  - Kyphosis [Unknown]
  - Muscle atrophy [Unknown]
  - Arthralgia [Unknown]
  - Osteosclerosis [Unknown]
  - Flank pain [Unknown]
  - Sinusitis [Unknown]
